FAERS Safety Report 14174316 (Version 1)
Quarter: 2017Q4

REPORT INFORMATION
  Report Type: Spontaneous
  Country: IT (occurrence: IT)
  Receive Date: 20171109
  Receipt Date: 20171109
  Transmission Date: 20180321
  Serious: Yes (Other)
  Sender: FDA-Public Use
  Company Number: IT-PFIZER INC-2017481160

PATIENT
  Age: 5 Year
  Sex: Female
  Weight: 20 kg

DRUGS (1)
  1. METHYLPREDNISOLONE SODIUM SUCCINATE. [Suspect]
     Active Substance: METHYLPREDNISOLONE SODIUM SUCCINATE
     Indication: AUTOIMMUNE HEPATITIS
     Dosage: 1 MG/KG, 2X/DAY
     Route: 042
     Dates: start: 20171031

REACTIONS (3)
  - Autoimmune hepatitis [Recovered/Resolved]
  - Sickle cell anaemia with crisis [Recovered/Resolved]
  - Sickle cell anaemia [Recovered/Resolved]

NARRATIVE: CASE EVENT DATE: 20171101
